FAERS Safety Report 19314062 (Version 1)
Quarter: 2021Q2

REPORT INFORMATION
  Report Type: Spontaneous
  Country: FR (occurrence: FR)
  Receive Date: 20210527
  Receipt Date: 20210527
  Transmission Date: 20210717
  Serious: Yes (Other)
  Sender: FDA-Public Use
  Company Number: FR-TEVA-2021-FR-1915433

PATIENT
  Sex: Female

DRUGS (1)
  1. VERAPAMIL TEVA LP [Suspect]
     Active Substance: VERAPAMIL HYDROCHLORIDE
     Indication: PRODUCT USED FOR UNKNOWN INDICATION

REACTIONS (5)
  - Feeling abnormal [Recovered/Resolved]
  - Dizziness [Recovered/Resolved]
  - Blood pressure abnormal [Recovered/Resolved]
  - Product substitution issue [Unknown]
  - Tachycardia paroxysmal [Recovered/Resolved]
